FAERS Safety Report 9716644 (Version 2)
Quarter: 2014Q1

REPORT INFORMATION
  Report Type: Spontaneous
  Country: US (occurrence: US)
  Receive Date: 20131127
  Receipt Date: 20140121
  Transmission Date: 20141002
  Serious: No
  Sender: FDA-Public Use
  Company Number: US-PFIZER INC-2013338602

PATIENT
  Age: 78 Year
  Sex: Female
  Weight: 38.55 kg

DRUGS (10)
  1. CHANTIX [Suspect]
     Indication: SMOKING CESSATION THERAPY
     Dosage: UNK
     Route: 048
  2. CHANTIX [Suspect]
     Dosage: 0.5 MG, 1X/DAY
     Route: 048
     Dates: start: 2013, end: 2013
  3. CHANTIX [Suspect]
     Dosage: 0.5 MG, 2X/DAY
     Route: 048
     Dates: start: 2013, end: 2013
  4. CHANTIX [Suspect]
     Dosage: 1 MG, 2X/DAY
     Route: 048
     Dates: start: 2013, end: 2013
  5. FOSAMAX [Suspect]
     Dosage: UNK
  6. METOPROLOL [Concomitant]
     Indication: CARDIAC DISORDER
     Dosage: 12.5 MG (BY CUTTING 25MG TABLET INTO HALF), 2X/DAY
     Route: 048
  7. ASPIRIN [Concomitant]
     Dosage: UNK, EVERY MORNING
  8. CELEXA [Concomitant]
     Dosage: 20 MG, EVERY MORNING
     Route: 048
  9. MOBIC [Concomitant]
     Dosage: UNK, AT NIGHT
  10. LYRICA [Concomitant]
     Indication: PAIN
     Dosage: UNK

REACTIONS (5)
  - Nausea [Not Recovered/Not Resolved]
  - Drug intolerance [Unknown]
  - Vitamin D decreased [Unknown]
  - Upper respiratory tract infection [Unknown]
  - Malaise [Unknown]
